FAERS Safety Report 19427963 (Version 2)
Quarter: 2021Q2

REPORT INFORMATION
  Report Type: Spontaneous
  Country: US (occurrence: US)
  Receive Date: 20210617
  Receipt Date: 20210628
  Transmission Date: 20210717
  Serious: No
  Sender: FDA-Public Use
  Company Number: US-TEVA-2021-US-1924158

PATIENT
  Age: 53 Year
  Sex: Female
  Weight: 58.97 kg

DRUGS (12)
  1. COQ12 [Concomitant]
  2. PROMETHAZINE [Concomitant]
     Active Substance: PROMETHAZINE HYDROCHLORIDE
     Indication: NAUSEA
     Dosage: 25 MG AS NEEDED
  3. VITAMIN D3 [Concomitant]
     Active Substance: CHOLECALCIFEROL
  4. SERTRALINE [Concomitant]
     Active Substance: SERTRALINE HYDROCHLORIDE
     Dosage: 100 MG IN THE MORNING
  5. FIORICET [Concomitant]
     Active Substance: ACETAMINOPHEN\BUTALBITAL\CAFFEINE
     Dosage: AS NEEDED
  6. AMITRIPTYLINE [Concomitant]
     Active Substance: AMITRIPTYLINE
     Indication: MIGRAINE PROPHYLAXIS
     Dosage: 25 MG AT BEDTIME
  7. BOTOX [Concomitant]
     Active Substance: ONABOTULINUMTOXINA
     Indication: TORTICOLLIS
  8. CINNAMON. [Concomitant]
     Active Substance: CINNAMON
  9. MULTIVITAMIN [Concomitant]
     Active Substance: VITAMINS
  10. AJOVY [Suspect]
     Active Substance: FREMANEZUMAB-VFRM
     Route: 065
     Dates: start: 20210410
  11. AJOVY [Suspect]
     Active Substance: FREMANEZUMAB-VFRM
     Indication: MIGRAINE
     Route: 065
     Dates: start: 202103
  12. BOTOX [Concomitant]
     Active Substance: ONABOTULINUMTOXINA
     Indication: MIGRAINE
     Dosage: 200 UNITS EVERY THREE MONTHS

REACTIONS (3)
  - Injection site rash [Recovered/Resolved]
  - Drug ineffective [Unknown]
  - Injection site pain [Unknown]

NARRATIVE: CASE EVENT DATE: 2021
